FAERS Safety Report 13137628 (Version 1)
Quarter: 2017Q1

REPORT INFORMATION
  Report Type: Spontaneous
  Country: US (occurrence: US)
  Receive Date: 20170122
  Receipt Date: 20170122
  Transmission Date: 20170428
  Serious: Yes (Hospitalization, Disabling)
  Sender: FDA-Public Use
  Company Number: None

PATIENT
  Age: 63 Year
  Sex: Male
  Weight: 113.5 kg

DRUGS (8)
  1. GABAPENTIN. [Concomitant]
     Active Substance: GABAPENTIN
  2. BENADRYL [Concomitant]
     Active Substance: DIPHENHYDRAMINE HYDROCHLORIDE
  3. OXYCODONE WITH ACETOMENAPHEN [Concomitant]
  4. ELAVIL [Concomitant]
     Active Substance: AMITRIPTYLINE HYDROCHLORIDE
  5. ASA [Concomitant]
     Active Substance: ASPIRIN
  6. XANAX [Concomitant]
     Active Substance: ALPRAZOLAM
  7. LINEZOLID. [Suspect]
     Active Substance: LINEZOLID
     Indication: INFECTION
     Dosage: ?          QUANTITY:1 TABLET;?
     Route: 048
     Dates: start: 20160208, end: 20161118
  8. ZOFRAN [Concomitant]
     Active Substance: ONDANSETRON HYDROCHLORIDE

REACTIONS (6)
  - Hypoaesthesia [None]
  - Gait disturbance [None]
  - Anaemia [None]
  - Neuropathy peripheral [None]
  - Balance disorder [None]
  - Sleep disorder [None]

NARRATIVE: CASE EVENT DATE: 20161030
